FAERS Safety Report 6708324-X (Version None)
Quarter: 2010Q2

REPORT INFORMATION
  Report Type: 
  Country: None (occurrence: None)
  Receive Date: 20100503
  Receipt Date: 20090903
  Transmission Date: 20101027
  Serious: No
  Sender: FDA-Public Use
  Company Number: US-ASTRAZENECA-2009SE11611

PATIENT
  Age: 49 Year
  Sex: Male
  Weight: 121.1 kg

DRUGS (7)
  1. NEXIUM [Suspect]
     Route: 048
     Dates: start: 20070301
  2. METFORMIN [Concomitant]
  3. ZOCOR [Concomitant]
  4. GABAPENTIN [Concomitant]
  5. JUNUVIA [Concomitant]
  6. ASPIRIN [Concomitant]
  7. HYDROCODONE BITARTRATE [Concomitant]

REACTIONS (3)
  - DRUG DOSE OMISSION [None]
  - GASTROOESOPHAGEAL REFLUX DISEASE [None]
  - INTENTIONAL DRUG MISUSE [None]
